FAERS Safety Report 19808913 (Version 1)
Quarter: 2021Q3

REPORT INFORMATION
  Report Type: Spontaneous
  Country: US (occurrence: US)
  Receive Date: 20210909
  Receipt Date: 20210909
  Transmission Date: 20211014
  Serious: Yes (Other)
  Sender: FDA-Public Use
  Company Number: None

PATIENT
  Sex: Female

DRUGS (1)
  1. PREDNISOLONE ACETATE. [Suspect]
     Active Substance: PREDNISOLONE ACETATE
     Dates: start: 20170601, end: 20180214

REACTIONS (10)
  - Skin atrophy [None]
  - Dyspnoea [None]
  - Corneal deposits [None]
  - Product prescribing issue [None]
  - Weight increased [None]
  - Hirsutism [None]
  - Eye disorder [None]
  - Cataract [None]
  - Increased appetite [None]
  - Collagen disorder [None]
